FAERS Safety Report 19389967 (Version 1)
Quarter: 2021Q2

REPORT INFORMATION
  Report Type: Spontaneous
  Country: DE (occurrence: DE)
  Receive Date: 20210608
  Receipt Date: 20210608
  Transmission Date: 20210717
  Serious: Yes (Hospitalization)
  Sender: FDA-Public Use
  Company Number: DE-TEVA-2021-DE-1920348

PATIENT
  Age: 58 Year
  Sex: Male

DRUGS (11)
  1. VALDOXAN [Concomitant]
     Active Substance: AGOMELATINE
     Dosage: 2 DOSAGE FORMS DAILY; 25 MG, 0?0?0?2
  2. PRADAXA [Concomitant]
     Active Substance: DABIGATRAN ETEXILATE MESYLATE
     Dosage: 300 MILLIGRAM DAILY; 1?0?1?0
  3. VERAPAMIL [Suspect]
     Active Substance: VERAPAMIL HYDROCHLORIDE
     Dosage: 120 MILLIGRAM DAILY; 0?0?1?0
     Route: 065
  4. VALSARTAN. [Concomitant]
     Active Substance: VALSARTAN
     Dosage: 1 DOSAGE FORMS DAILY; 160 MG, 0.5?0?0.5?0
  5. METFORMIN [Interacting]
     Active Substance: METFORMIN HYDROCHLORIDE
     Dosage: 200 MILLIGRAM DAILY; 1?0?1?0
     Route: 065
  6. SIMVASTATIN. [Concomitant]
     Active Substance: SIMVASTATIN
     Dosage: 20 MILLIGRAM DAILY; 0?0?0?1
  7. ALPRAZOLAM. [Concomitant]
     Active Substance: ALPRAZOLAM
     Dosage: 1 MG, AS NEEDED
  8. TRIMIPRAMIN [Concomitant]
     Active Substance: TRIMIPRAMINE
     Dosage: 2 DOSAGE FORMS DAILY; 100 MG, 0?0?2?0
  9. PANTOPRAZOL [Concomitant]
     Active Substance: PANTOPRAZOLE SODIUM
     Dosage: 40 MILLIGRAM DAILY; 0?0?0?1
  10. DIGITOXIN [Interacting]
     Active Substance: DIGITOXIN
     Dosage: .1 MILLIGRAM DAILY;
     Route: 065
  11. METAMIZOL [Concomitant]
     Active Substance: METAMIZOLE SODIUM
     Dosage: 500 MG, AS NEEDED

REACTIONS (6)
  - Polydipsia [Unknown]
  - Polyuria [Unknown]
  - Bradycardia [Unknown]
  - Hyperglycaemia [Unknown]
  - Asthenia [Unknown]
  - Labelled drug-drug interaction medication error [Unknown]
